FAERS Safety Report 20095095 (Version 1)
Quarter: 2021Q4

REPORT INFORMATION
  Report Type: Report from Study
  Country: JP (occurrence: JP)
  Receive Date: 20211122
  Receipt Date: 20211122
  Transmission Date: 20220304
  Serious: Yes (Death, Other)
  Sender: FDA-Public Use
  Company Number: JP-CHUGAI-2021021492

PATIENT
  Age: 66 Year
  Sex: Male
  Weight: 75 kg

DRUGS (4)
  1. ALECTINIB [Suspect]
     Active Substance: ALECTINIB
     Indication: Rectosigmoid cancer
     Dosage: 300 MILLIGRAM, BID
     Route: 048
     Dates: start: 20210917, end: 20211001
  2. ALECTINIB [Suspect]
     Active Substance: ALECTINIB
     Indication: Metastases to liver
  3. ALECTINIB [Suspect]
     Active Substance: ALECTINIB
     Indication: Metastases to lymph nodes
  4. HALOPERIDOL [Concomitant]
     Active Substance: HALOPERIDOL
     Indication: Sedation
     Dosage: 1.25 MILLIGRAM, BID
     Route: 042
     Dates: start: 20211001, end: 20211005

REACTIONS (5)
  - Disease progression [Fatal]
  - Aspartate aminotransferase increased [Fatal]
  - Blood creatinine increased [Not Recovered/Not Resolved]
  - Acute kidney injury [Not Recovered/Not Resolved]
  - Haemorrhagic cyst [Unknown]

NARRATIVE: CASE EVENT DATE: 20210927
